FAERS Safety Report 25282777 (Version 3)
Quarter: 2025Q2

REPORT INFORMATION
  Report Type: Spontaneous
  Country: US (occurrence: US)
  Receive Date: 20250508
  Receipt Date: 20250611
  Transmission Date: 20250716
  Serious: No
  Sender: PFIZER
  Company Number: US-PFIZER INC-202500095685

PATIENT
  Age: 61 Year
  Sex: Female
  Weight: 70.31 kg

DRUGS (13)
  1. IBRANCE [Suspect]
     Active Substance: PALBOCICLIB
     Indication: Breast cancer metastatic
     Route: 048
     Dates: start: 20250320, end: 20250428
  2. IBRANCE [Suspect]
     Active Substance: PALBOCICLIB
     Route: 048
  3. GERITOL [VITAMINS NOS] [Concomitant]
  4. ALPRAZOLAM [Concomitant]
     Active Substance: ALPRAZOLAM
  5. AMLODIPINE BESYLATE [Concomitant]
     Active Substance: AMLODIPINE BESYLATE
  6. CARVEDILOL [Concomitant]
     Active Substance: CARVEDILOL
     Indication: Hypertension
     Dosage: 25 MG, 2X/DAY
  7. FASLODEX [Concomitant]
     Active Substance: FULVESTRANT
  8. LISINOPRIL [Concomitant]
     Active Substance: LISINOPRIL
  9. ONDANSETRON [Concomitant]
     Active Substance: ONDANSETRON
  10. SPIRONOLACTONE [Concomitant]
     Active Substance: SPIRONOLACTONE
  11. MINOXIDIL [Concomitant]
     Active Substance: MINOXIDIL
  12. JARDIANCE [Concomitant]
     Active Substance: EMPAGLIFLOZIN
     Indication: Cardiac failure
     Dosage: 10 MG, 1X/DAY
  13. SENNA [Concomitant]
     Active Substance: SENNOSIDES

REACTIONS (1)
  - White blood cell count decreased [Recovered/Resolved]

NARRATIVE: CASE EVENT DATE: 20250428
